FAERS Safety Report 9183798 (Version 1)
Quarter: 2012Q4

REPORT INFORMATION
  Report Type: 
  Country: GB (occurrence: GB)
  Receive Date: 20121101
  Receipt Date: 20121101
  Transmission Date: 20130627
  Serious: Yes (Other)
  Sender: FDA-Public Use
  Company Number: GB-ROCHE-1151251

PATIENT
  Age: 43 Year
  Sex: Female
  Weight: 65 kg

DRUGS (5)
  1. MABTHERA [Suspect]
     Indication: IDIOPATHIC THROMBOCYTOPENIC PURPURA
     Route: 042
     Dates: start: 201007, end: 201008
  2. MABTHERA [Suspect]
     Indication: RHEUMATOID ARTHRITIS
  3. CALCICHEW [Concomitant]
     Route: 048
  4. FOLIC ACID [Concomitant]
     Route: 048
  5. METHOTREXATE [Concomitant]
     Route: 048
     Dates: start: 201209

REACTIONS (1)
  - Malignant melanoma stage I [Recovering/Resolving]
